FAERS Safety Report 12282889 (Version 1)
Quarter: 2016Q2

REPORT INFORMATION
  Report Type: Spontaneous
  Country: US (occurrence: US)
  Receive Date: 20160419
  Receipt Date: 20160419
  Transmission Date: 20160815
  Serious: Yes (Other)
  Sender: FDA-Public Use
  Company Number: PHHY2016US040583

PATIENT
  Age: 39 Year
  Sex: Female

DRUGS (9)
  1. BACLOFEN INTRATHECAL [Suspect]
     Active Substance: BACLOFEN
     Indication: PAIN
     Dosage: 95.59 UG, QD
     Route: 037
     Dates: start: 2014
  2. BACLOFEN INTRATHECAL [Suspect]
     Active Substance: BACLOFEN
     Indication: NECK PAIN
  3. FENTANYL. [Suspect]
     Active Substance: FENTANYL
     Indication: NECK PAIN
  4. LYRICA [Suspect]
     Active Substance: PREGABALIN
     Indication: PRODUCT USED FOR UNKNOWN INDICATION
     Dosage: 300 MG, EVERY 12 HOUR
     Route: 048
  5. FENTANYL. [Suspect]
     Active Substance: FENTANYL
     Indication: PAIN
     Dosage: 955.9 MCG/DAY
     Route: 037
     Dates: start: 2013
  6. BUPIVACAINE. [Suspect]
     Active Substance: BUPIVACAINE
     Indication: NECK PAIN
  7. TIZANIDINE. [Suspect]
     Active Substance: TIZANIDINE
     Indication: PRODUCT USED FOR UNKNOWN INDICATION
     Dosage: 4 MG, UNK
     Route: 065
  8. BUPIVACAINE. [Suspect]
     Active Substance: BUPIVACAINE
     Indication: PAIN
     Dosage: 7.647 MCG/DAY
     Route: 037
     Dates: start: 2013
  9. DILAUDID [Suspect]
     Active Substance: HYDROMORPHONE HYDROCHLORIDE
     Indication: PRODUCT USED FOR UNKNOWN INDICATION
     Dosage: 4 MG, EVERY EIGHT HOUR
     Route: 048

REACTIONS (2)
  - Neuropathy peripheral [Recovering/Resolving]
  - Pain [Recovering/Resolving]

NARRATIVE: CASE EVENT DATE: 20160315
